FAERS Safety Report 19302397 (Version 1)
Quarter: 2021Q2

REPORT INFORMATION
  Report Type: Spontaneous
  Country: ES (occurrence: ES)
  Receive Date: 20210525
  Receipt Date: 20210525
  Transmission Date: 20210717
  Serious: Yes (Other)
  Sender: FDA-Public Use
  Company Number: ES-SA-2021SA173545

PATIENT
  Age: 54 Year
  Sex: Male

DRUGS (8)
  1. METHOTREXATE. [Concomitant]
     Active Substance: METHOTREXATE
     Indication: CUTANEOUS T-CELL LYMPHOMA
     Dosage: 15 MG, QW
  2. DUPILUMAB [Suspect]
     Active Substance: DUPILUMAB
     Dosage: 300 MG, QOW
  3. DUPILUMAB [Suspect]
     Active Substance: DUPILUMAB
     Indication: DERMATITIS ATOPIC
     Dosage: 600 MG, TOTAL
  4. CYCLOSPORIN [Concomitant]
     Active Substance: CYCLOSPORINE
     Dosage: 3.5?5 MG/KG/DAY
  5. OMALIZUMAB. [Concomitant]
     Active Substance: OMALIZUMAB
     Dosage: 600 MG, QM
  6. AZATHIOPRINE. [Concomitant]
     Active Substance: AZATHIOPRINE
  7. MYCOPHENOLATE MOFETIL. [Concomitant]
     Active Substance: MYCOPHENOLATE MOFETIL
  8. EFALIZUMAB [Concomitant]
     Active Substance: EFALIZUMAB

REACTIONS (1)
  - Cutaneous T-cell lymphoma [Unknown]
